FAERS Safety Report 9639927 (Version 1)
Quarter: 2013Q4

REPORT INFORMATION
  Report Type: Spontaneous
  Country: US (occurrence: US)
  Receive Date: 20131023
  Receipt Date: 20131023
  Transmission Date: 20140711
  Serious: No
  Sender: FDA-Public Use
  Company Number: US-MYLANLABS-2013S1008395

PATIENT
  Age: 76 Year
  Sex: Male

DRUGS (1)
  1. CARVEDILOL TABLETS [Suspect]
     Indication: HYPERTENSION
     Route: 048
     Dates: start: 201205

REACTIONS (2)
  - Drug effect decreased [Recovered/Resolved]
  - Blood pressure increased [Recovered/Resolved]
